FAERS Safety Report 23556656 (Version 3)
Quarter: 2025Q3

REPORT INFORMATION
  Report Type: Spontaneous
  Country: CA (occurrence: CA)
  Receive Date: 20240223
  Receipt Date: 20250828
  Transmission Date: 20251021
  Serious: Yes (Other)
  Sender: Haleon PLC
  Company Number: CA-002147023-NVSC2024CA031750

PATIENT
  Sex: Female

DRUGS (406)
  1. FLONASE ALLERGY RELIEF [Suspect]
     Active Substance: FLUTICASONE PROPIONATE
     Indication: Product used for unknown indication
  2. FLONASE ALLERGY RELIEF [Suspect]
     Active Substance: FLUTICASONE PROPIONATE
     Dosage: 500 MG, QD (1 EVERY 1 DAY)
  3. FLONASE ALLERGY RELIEF [Suspect]
     Active Substance: FLUTICASONE PROPIONATE
     Dosage: 500.0 MG, Q12H
  4. FLONASE ALLERGY RELIEF [Suspect]
     Active Substance: FLUTICASONE PROPIONATE
  5. FLONASE ALLERGY RELIEF [Suspect]
     Active Substance: FLUTICASONE PROPIONATE
     Dosage: 500 MG, QD (1 EVERY 1 DAY)
  6. FLONASE ALLERGY RELIEF [Suspect]
     Active Substance: FLUTICASONE PROPIONATE
     Dosage: 500.0 MG, Q12H
  7. FLONASE ALLERGY RELIEF [Suspect]
     Active Substance: FLUTICASONE PROPIONATE
  8. FLONASE ALLERGY RELIEF [Suspect]
     Active Substance: FLUTICASONE PROPIONATE
     Dosage: 500 MG, QD (1 EVERY 1 DAY)
  9. FLONASE ALLERGY RELIEF [Suspect]
     Active Substance: FLUTICASONE PROPIONATE
  10. FLONASE ALLERGY RELIEF [Suspect]
     Active Substance: FLUTICASONE PROPIONATE
     Dosage: 500.0 MG, Q12H
  11. FLONASE ALLERGY RELIEF [Suspect]
     Active Substance: FLUTICASONE PROPIONATE
  12. DICLOFENAC SODIUM [Suspect]
     Active Substance: DICLOFENAC SODIUM
     Indication: Product used for unknown indication
  13. DICLOFENAC SODIUM [Suspect]
     Active Substance: DICLOFENAC SODIUM
  14. DICLOFENAC SODIUM [Suspect]
     Active Substance: DICLOFENAC SODIUM
     Dosage: 75 MG, QD
  15. DICLOFENAC SODIUM [Suspect]
     Active Substance: DICLOFENAC SODIUM
     Dosage: 75 MG, QD
  16. CRINONE [Suspect]
     Active Substance: PROGESTERONE
     Indication: Product used for unknown indication
  17. SENOKOT [Suspect]
     Active Substance: SENNOSIDES
     Indication: Product used for unknown indication
  18. SENOKOT [Suspect]
     Active Substance: SENNOSIDES
  19. SENOKOT [Suspect]
     Active Substance: SENNOSIDES
  20. SENOKOT [Suspect]
     Active Substance: SENNOSIDES
  21. EX-LAX REGULAR STRENGTH [Suspect]
     Active Substance: SENNOSIDES
     Indication: Product used for unknown indication
  22. EX-LAX REGULAR STRENGTH [Suspect]
     Active Substance: SENNOSIDES
  23. EX-LAX REGULAR STRENGTH [Suspect]
     Active Substance: SENNOSIDES
  24. CYCLOBENZAPRINE HYDROCHLORIDE [Suspect]
     Active Substance: CYCLOBENZAPRINE HYDROCHLORIDE
     Indication: Eczema
  25. CYCLOBENZAPRINE HYDROCHLORIDE [Suspect]
     Active Substance: CYCLOBENZAPRINE HYDROCHLORIDE
  26. SLEEP AID (DIPHENHYDRAMINE HYDROCHLORIDE) [Suspect]
     Active Substance: DIPHENHYDRAMINE HYDROCHLORIDE
     Indication: Product used for unknown indication
  27. SLEEP AID (DIPHENHYDRAMINE HYDROCHLORIDE) [Suspect]
     Active Substance: DIPHENHYDRAMINE HYDROCHLORIDE
     Dosage: 75 MG, QD
  28. FLUTICASONE PROPIONATE [Suspect]
     Active Substance: FLUTICASONE PROPIONATE
     Indication: Product used for unknown indication
  29. FLUTICASONE PROPIONATE [Suspect]
     Active Substance: FLUTICASONE PROPIONATE
  30. FLUTICASONE PROPIONATE [Suspect]
     Active Substance: FLUTICASONE PROPIONATE
  31. FLUTICASONE PROPIONATE [Suspect]
     Active Substance: FLUTICASONE PROPIONATE
  32. FLUTICASONE PROPIONATE [Suspect]
     Active Substance: FLUTICASONE PROPIONATE
  33. FLUTICASONE PROPIONATE [Suspect]
     Active Substance: FLUTICASONE PROPIONATE
  34. FLUTICASONE PROPIONATE [Suspect]
     Active Substance: FLUTICASONE PROPIONATE
  35. FLUTICASONE PROPIONATE [Suspect]
     Active Substance: FLUTICASONE PROPIONATE
  36. FLUTICASONE PROPIONATE [Suspect]
     Active Substance: FLUTICASONE PROPIONATE
  37. FLUTICASONE PROPIONATE [Suspect]
     Active Substance: FLUTICASONE PROPIONATE
  38. FLUTICASONE PROPIONATE [Suspect]
     Active Substance: FLUTICASONE PROPIONATE
  39. ENBREL [Suspect]
     Active Substance: ETANERCEPT
     Indication: Product used for unknown indication
  40. ENBREL [Suspect]
     Active Substance: ETANERCEPT
     Indication: Rheumatoid arthritis
  41. VITAMIN C [Suspect]
     Active Substance: ASCORBIC ACID
     Indication: Product used for unknown indication
  42. VITAMIN C [Suspect]
     Active Substance: ASCORBIC ACID
  43. VITAMIN C [Suspect]
     Active Substance: ASCORBIC ACID
  44. CLONIDINE HYDROCHLORIDE [Suspect]
     Active Substance: CLONIDINE HYDROCHLORIDE
     Indication: Eczema
  45. ORENCIA [Suspect]
     Active Substance: ABATACEPT
     Indication: Product used for unknown indication
  46. ORENCIA [Suspect]
     Active Substance: ABATACEPT
     Dosage: 1 DOSAGE FORM, QW, ROA: INTRAVENOUS (NOT OTHERWISE SPECIFIED)
  47. ORENCIA [Suspect]
     Active Substance: ABATACEPT
  48. RANITIDINE HYDROCHLORIDE [Suspect]
     Active Substance: RANITIDINE HYDROCHLORIDE
     Indication: Product used for unknown indication
  49. RANITIDINE HYDROCHLORIDE [Suspect]
     Active Substance: RANITIDINE HYDROCHLORIDE
  50. RANITIDINE HYDROCHLORIDE [Suspect]
     Active Substance: RANITIDINE HYDROCHLORIDE
  51. RANITIDINE HYDROCHLORIDE [Suspect]
     Active Substance: RANITIDINE HYDROCHLORIDE
  52. RANITIDINE HYDROCHLORIDE [Suspect]
     Active Substance: RANITIDINE HYDROCHLORIDE
  53. RANITIDINE HYDROCHLORIDE [Suspect]
     Active Substance: RANITIDINE HYDROCHLORIDE
  54. RANITIDINE HYDROCHLORIDE [Suspect]
     Active Substance: RANITIDINE HYDROCHLORIDE
  55. RANITIDINE HYDROCHLORIDE [Suspect]
     Active Substance: RANITIDINE HYDROCHLORIDE
  56. RANITIDINE HYDROCHLORIDE [Suspect]
     Active Substance: RANITIDINE HYDROCHLORIDE
  57. HYDROMORPHONE HYDROCHLORIDE [Suspect]
     Active Substance: HYDROMORPHONE HYDROCHLORIDE
     Indication: Product used for unknown indication
  58. HYDROMORPHONE HYDROCHLORIDE [Suspect]
     Active Substance: HYDROMORPHONE HYDROCHLORIDE
  59. WELLBUTRIN [Suspect]
     Active Substance: BUPROPION HYDROCHLORIDE
     Indication: Product used for unknown indication
  60. WELLBUTRIN [Suspect]
     Active Substance: BUPROPION HYDROCHLORIDE
  61. WELLBUTRIN [Suspect]
     Active Substance: BUPROPION HYDROCHLORIDE
  62. WELLBUTRIN [Suspect]
     Active Substance: BUPROPION HYDROCHLORIDE
  63. WELLBUTRIN [Suspect]
     Active Substance: BUPROPION HYDROCHLORIDE
  64. WELLBUTRIN [Suspect]
     Active Substance: BUPROPION HYDROCHLORIDE
  65. WELLBUTRIN [Suspect]
     Active Substance: BUPROPION HYDROCHLORIDE
  66. WELLBUTRIN [Suspect]
     Active Substance: BUPROPION HYDROCHLORIDE
  67. BUPROPION HYDROCHLORIDE [Suspect]
     Active Substance: BUPROPION HYDROCHLORIDE
     Indication: Product used for unknown indication
  68. BUPROPION HYDROCHLORIDE [Suspect]
     Active Substance: BUPROPION HYDROCHLORIDE
  69. BUPROPION HYDROCHLORIDE [Suspect]
     Active Substance: BUPROPION HYDROCHLORIDE
  70. BUPROPION HYDROCHLORIDE [Suspect]
     Active Substance: BUPROPION HYDROCHLORIDE
  71. BUPROPION HYDROCHLORIDE [Suspect]
     Active Substance: BUPROPION HYDROCHLORIDE
  72. BUPROPION HYDROCHLORIDE [Suspect]
     Active Substance: BUPROPION HYDROCHLORIDE
  73. REMICADE [Suspect]
     Active Substance: INFLIXIMAB
     Indication: Product used for unknown indication
  74. REMICADE [Suspect]
     Active Substance: INFLIXIMAB
  75. REMICADE [Suspect]
     Active Substance: INFLIXIMAB
  76. REMICADE [Suspect]
     Active Substance: INFLIXIMAB
  77. REMICADE [Suspect]
     Active Substance: INFLIXIMAB
  78. ALBUTEROL [Suspect]
     Active Substance: ALBUTEROL
     Indication: Product used for unknown indication
  79. ALBUTEROL [Suspect]
     Active Substance: ALBUTEROL
  80. ALBUTEROL [Suspect]
     Active Substance: ALBUTEROL
  81. ALBUTEROL [Suspect]
     Active Substance: ALBUTEROL
  82. PROGESTERONE [Suspect]
     Active Substance: PROGESTERONE
     Indication: Product used for unknown indication
     Route: 030
  83. PROGESTERONE [Suspect]
     Active Substance: PROGESTERONE
     Route: 030
  84. PROGESTERONE [Suspect]
     Active Substance: PROGESTERONE
  85. PROGESTERONE [Suspect]
     Active Substance: PROGESTERONE
  86. PROGESTERONE [Suspect]
     Active Substance: PROGESTERONE
  87. PROGESTERONE [Suspect]
     Active Substance: PROGESTERONE
  88. PROGESTERONE [Suspect]
     Active Substance: PROGESTERONE
  89. PROGESTERONE [Suspect]
     Active Substance: PROGESTERONE
  90. ALBUTEROL [Suspect]
     Active Substance: ALBUTEROL
     Indication: Product used for unknown indication
  91. ALBUTEROL [Suspect]
     Active Substance: ALBUTEROL
  92. ZOPICLONE [Suspect]
     Active Substance: ZOPICLONE
     Indication: Product used for unknown indication
  93. FLOVENT [Suspect]
     Active Substance: FLUTICASONE PROPIONATE
     Indication: Product used for unknown indication
  94. ACTEMRA [Suspect]
     Active Substance: TOCILIZUMAB
     Indication: Rheumatoid arthritis
     Dosage: DOSE FORM: SOLUTION FOR INJECTION IN PRE-FILLED SYRINGE AND ROA: SUBCUTANEOUS
  95. ACTEMRA [Suspect]
     Active Substance: TOCILIZUMAB
     Indication: Product used for unknown indication
  96. ACTEMRA [Suspect]
     Active Substance: TOCILIZUMAB
     Dosage: DOSE FORM: SOLUTION FOR INJECTION IN PRE-FILLED SYRINGE AND ROA: SUBCUTANEOUS
  97. ACTEMRA [Suspect]
     Active Substance: TOCILIZUMAB
     Dosage: DOSE FORM: SOLUTION FOR INJECTION IN PRE-FILLED SYRINGE AND ROA: SUBCUTANEOUS
  98. ACTEMRA [Suspect]
     Active Substance: TOCILIZUMAB
  99. ACTEMRA [Suspect]
     Active Substance: TOCILIZUMAB
  100. ACTEMRA [Suspect]
     Active Substance: TOCILIZUMAB
     Dosage: DOSE FORM: SOLUTION FOR INJECTION IN PRE-FILLED SYRINGE AND ROA: SUBCUTANEOUS
  101. ACTEMRA [Suspect]
     Active Substance: TOCILIZUMAB
     Dosage: DOSE FORM: SOLUTION FOR INJECTION IN PRE-FILLED SYRINGE AND ROA: SUBCUTANEOUS
  102. ACTEMRA [Suspect]
     Active Substance: TOCILIZUMAB
     Dosage: DOSE FORM: SOLUTION FOR INJECTION IN PRE-FILLED SYRINGE AND ROA: SUBCUTANEOUS
  103. ACTEMRA [Suspect]
     Active Substance: TOCILIZUMAB
     Dosage: DOSE FORM: SOLUTION FOR INJECTION IN PRE-FILLED SYRINGE AND ROA: SUBCUTANEOUS
  104. ACTEMRA [Suspect]
     Active Substance: TOCILIZUMAB
  105. ACTEMRA [Suspect]
     Active Substance: TOCILIZUMAB
     Dosage: DOSE FORM: SOLUTION FOR INJECTION IN PRE-FILLED SYRINGE AND ROA: SUBCUTANEOUS
  106. ACTEMRA [Suspect]
     Active Substance: TOCILIZUMAB
     Dosage: DOSE FORM: SOLUTION FOR INJECTION IN PRE-FILLED SYRINGE AND ROA: SUBCUTANEOUS
  107. ACTEMRA [Suspect]
     Active Substance: TOCILIZUMAB
     Dosage: DOSE FORM: SOLUTION FOR INJECTION IN PRE-FILLED SYRINGE AND ROA: SUBCUTANEOUS
  108. ACTEMRA [Suspect]
     Active Substance: TOCILIZUMAB
     Dosage: DOSE FORM: SOLUTION FOR INJECTION IN PRE-FILLED SYRINGE AND ROA: SUBCUTANEOUS
  109. ACTEMRA [Suspect]
     Active Substance: TOCILIZUMAB
  110. ACTEMRA [Suspect]
     Active Substance: TOCILIZUMAB
     Dosage: DOSE FORM: SOLUTION FOR INJECTION IN PRE-FILLED SYRINGE AND ROA: SUBCUTANEOUS
  111. ACTEMRA [Suspect]
     Active Substance: TOCILIZUMAB
  112. ACTEMRA [Suspect]
     Active Substance: TOCILIZUMAB
     Dosage: DOSE FORM: SOLUTION FOR INJECTION IN PRE-FILLED SYRINGE AND ROA: SUBCUTANEOUS
  113. ACTEMRA [Suspect]
     Active Substance: TOCILIZUMAB
     Dosage: DOSE FORM: SOLUTION FOR INJECTION IN PRE-FILLED SYRINGE AND ROA: SUBCUTANEOUS
  114. ACTEMRA [Suspect]
     Active Substance: TOCILIZUMAB
     Dosage: DOSE FORM: SOLUTION FOR INJECTION IN PRE-FILLED SYRINGE
  115. ACTEMRA [Suspect]
     Active Substance: TOCILIZUMAB
  116. CHLORMEZANONE [Suspect]
     Active Substance: CHLORMEZANONE
     Indication: Rheumatoid arthritis
  117. CHLORMEZANONE [Suspect]
     Active Substance: CHLORMEZANONE
  118. CHLORMEZANONE [Suspect]
     Active Substance: CHLORMEZANONE
  119. ACETAMINOPHEN [Suspect]
     Active Substance: ACETAMINOPHEN
     Indication: Product used for unknown indication
  120. SENNA LEAF [Suspect]
     Active Substance: SENNA LEAF
     Indication: Product used for unknown indication
  121. PANTOPRAZOLE SODIUM [Suspect]
     Active Substance: PANTOPRAZOLE SODIUM
     Indication: Product used for unknown indication
  122. PANTOPRAZOLE SODIUM [Suspect]
     Active Substance: PANTOPRAZOLE SODIUM
  123. PANTOPRAZOLE MAGNESIUM [Suspect]
     Active Substance: PANTOPRAZOLE MAGNESIUM
     Indication: Product used for unknown indication
  124. ABACAVIR SULFATE [Suspect]
     Active Substance: ABACAVIR SULFATE
     Indication: Product used for unknown indication
  125. FUROSEMIDE [Suspect]
     Active Substance: FUROSEMIDE
     Indication: Product used for unknown indication
  126. METHYLPREDNISOLONE SODIUM SUCCINATE [Suspect]
     Active Substance: METHYLPREDNISOLONE SODIUM SUCCINATE
     Indication: Product used for unknown indication
  127. METHYLPREDNISOLONE SODIUM SUCCINATE [Suspect]
     Active Substance: METHYLPREDNISOLONE SODIUM SUCCINATE
  128. METHYLPREDNISOLONE SODIUM SUCCINATE [Suspect]
     Active Substance: METHYLPREDNISOLONE SODIUM SUCCINATE
  129. METHYLPREDNISOLONE SODIUM SUCCINATE [Suspect]
     Active Substance: METHYLPREDNISOLONE SODIUM SUCCINATE
  130. METHYLPREDNISOLONE SODIUM SUCCINATE [Suspect]
     Active Substance: METHYLPREDNISOLONE SODIUM SUCCINATE
  131. METHYLPREDNISOLONE SODIUM SUCCINATE [Suspect]
     Active Substance: METHYLPREDNISOLONE SODIUM SUCCINATE
  132. METHYLPREDNISOLONE SODIUM PHOSPHATE [Suspect]
     Active Substance: METHYLPREDNISOLONE SODIUM PHOSPHATE
     Indication: Product used for unknown indication
  133. RESTORIL [Suspect]
     Active Substance: TEMAZEPAM
     Indication: Product used for unknown indication
  134. RESTORIL [Suspect]
     Active Substance: TEMAZEPAM
  135. FLUCONAZOLE [Suspect]
     Active Substance: FLUCONAZOLE
     Indication: Product used for unknown indication
  136. KETOPROFEN [Suspect]
     Active Substance: KETOPROFEN
     Indication: Product used for unknown indication
  137. SENOKOT [Suspect]
     Active Substance: SENNOSIDES
     Indication: Product used for unknown indication
  138. SENOKOT [Suspect]
     Active Substance: SENNOSIDES
  139. SENOKOT [Suspect]
     Active Substance: SENNOSIDES
  140. SENOKOT [Suspect]
     Active Substance: SENNOSIDES
  141. DOLUTEGRAVIR SODIUM [Concomitant]
     Active Substance: DOLUTEGRAVIR SODIUM
     Indication: Product used for unknown indication
  142. PANTOPRAZOLE MAGNESIUM [Suspect]
     Active Substance: PANTOPRAZOLE MAGNESIUM
     Indication: Product used for unknown indication
  143. PANTOPRAZOLE MAGNESIUM [Suspect]
     Active Substance: PANTOPRAZOLE MAGNESIUM
  144. PANTOPRAZOLE MAGNESIUM [Suspect]
     Active Substance: PANTOPRAZOLE MAGNESIUM
  145. PANTOPRAZOLE MAGNESIUM [Suspect]
     Active Substance: PANTOPRAZOLE MAGNESIUM
  146. PANTOPRAZOLE MAGNESIUM [Suspect]
     Active Substance: PANTOPRAZOLE MAGNESIUM
  147. PANTOPRAZOLE MAGNESIUM [Suspect]
     Active Substance: PANTOPRAZOLE MAGNESIUM
  148. DIPHENHYDRAMINE [Suspect]
     Active Substance: DIPHENHYDRAMINE
     Indication: Product used for unknown indication
  149. DIPHENHYDRAMINE [Suspect]
     Active Substance: DIPHENHYDRAMINE
     Dosage: DOSE FORM: OINTMENT
  150. DIPHENHYDRAMINE [Suspect]
     Active Substance: DIPHENHYDRAMINE
     Dosage: 75 MG, QD (1 EVERY 1 DAYS), DOSE FORM: OINTMENT
  151. DIPHENHYDRAMINE [Suspect]
     Active Substance: DIPHENHYDRAMINE
  152. DIPHENHYDRAMINE [Suspect]
     Active Substance: DIPHENHYDRAMINE
     Dosage: 75 MG, QD (1 EVERY 1 DAYS), DOSE FORM: OINTMENT
  153. DIPHENHYDRAMINE [Suspect]
     Active Substance: DIPHENHYDRAMINE
  154. DIPHENHYDRAMINE [Suspect]
     Active Substance: DIPHENHYDRAMINE
     Dosage: 1 EVERY 1 DAYS, DOSE FORM: OINTMENT
  155. DIPHENHYDRAMINE [Suspect]
     Active Substance: DIPHENHYDRAMINE
     Dosage: 1 EVERY 1 DAYS, DOSE FORM: OINTMENT
  156. DIPHENHYDRAMINE [Suspect]
     Active Substance: DIPHENHYDRAMINE
     Dosage: 1 EVERY 1 DAYS, DOSE FORM: OINTMENT
  157. DIPHENHYDRAMINE [Suspect]
     Active Substance: DIPHENHYDRAMINE
     Dosage: 1 EVERY 1 DAYS, DOSE FORM: OINTMENT
  158. DIPHENHYDRAMINE [Suspect]
     Active Substance: DIPHENHYDRAMINE
     Dosage: 1 EVERY 1 DAYS, DOSE FORM: OINTMENT
  159. DIPHENHYDRAMINE [Suspect]
     Active Substance: DIPHENHYDRAMINE
     Dosage: 1 EVERY 1 DAYS, DOSE FORM: OINTMENT
  160. DIPHENHYDRAMINE [Suspect]
     Active Substance: DIPHENHYDRAMINE
     Dosage: 1 EVERY 1 DAYS, DOSE FORM: OINTMENT
  161. DIPHENHYDRAMINE [Suspect]
     Active Substance: DIPHENHYDRAMINE
  162. DIPHENHYDRAMINE [Suspect]
     Active Substance: DIPHENHYDRAMINE
  163. CYCLOBENZAPRINE [Suspect]
     Active Substance: CYCLOBENZAPRINE
     Indication: Eczema
  164. CYCLOBENZAPRINE [Suspect]
     Active Substance: CYCLOBENZAPRINE
     Indication: Product used for unknown indication
  165. CYCLOBENZAPRINE [Suspect]
     Active Substance: CYCLOBENZAPRINE
  166. SINGULAIR [Suspect]
     Active Substance: MONTELUKAST SODIUM
     Indication: Product used for unknown indication
  167. NORTRIPTYLINE HYDROCHLORIDE [Suspect]
     Active Substance: NORTRIPTYLINE HYDROCHLORIDE
     Indication: Product used for unknown indication
  168. NORTRIPTYLINE HYDROCHLORIDE [Suspect]
     Active Substance: NORTRIPTYLINE HYDROCHLORIDE
  169. NORTRIPTYLINE HYDROCHLORIDE [Suspect]
     Active Substance: NORTRIPTYLINE HYDROCHLORIDE
  170. NORTRIPTYLINE HYDROCHLORIDE [Suspect]
     Active Substance: NORTRIPTYLINE HYDROCHLORIDE
  171. NORTRIPTYLINE HYDROCHLORIDE [Suspect]
     Active Substance: NORTRIPTYLINE HYDROCHLORIDE
  172. NORTRIPTYLINE HYDROCHLORIDE [Suspect]
     Active Substance: NORTRIPTYLINE HYDROCHLORIDE
  173. ADVAIR HFA [Suspect]
     Active Substance: FLUTICASONE PROPIONATE\SALMETEROL XINAFOATE
     Indication: Product used for unknown indication
  174. ADVAIR HFA [Suspect]
     Active Substance: FLUTICASONE PROPIONATE\SALMETEROL XINAFOATE
  175. ADVAIR HFA [Suspect]
     Active Substance: FLUTICASONE PROPIONATE\SALMETEROL XINAFOATE
  176. ADVAIR HFA [Suspect]
     Active Substance: FLUTICASONE PROPIONATE\SALMETEROL XINAFOATE
  177. ADVAIR HFA [Suspect]
     Active Substance: FLUTICASONE PROPIONATE\SALMETEROL XINAFOATE
     Dosage: 500 MG
  178. ADVAIR HFA [Suspect]
     Active Substance: FLUTICASONE PROPIONATE\SALMETEROL XINAFOATE
  179. ADVAIR HFA [Suspect]
     Active Substance: FLUTICASONE PROPIONATE\SALMETEROL XINAFOATE
  180. ADVAIR HFA [Suspect]
     Active Substance: FLUTICASONE PROPIONATE\SALMETEROL XINAFOATE
  181. ADVAIR HFA [Suspect]
     Active Substance: FLUTICASONE PROPIONATE\SALMETEROL XINAFOATE
  182. ADVAIR HFA [Suspect]
     Active Substance: FLUTICASONE PROPIONATE\SALMETEROL XINAFOATE
  183. ADVAIR HFA [Suspect]
     Active Substance: FLUTICASONE PROPIONATE\SALMETEROL XINAFOATE
  184. ADVAIR HFA [Suspect]
     Active Substance: FLUTICASONE PROPIONATE\SALMETEROL XINAFOATE
  185. ADVAIR HFA [Suspect]
     Active Substance: FLUTICASONE PROPIONATE\SALMETEROL XINAFOATE
  186. ADVAIR HFA [Suspect]
     Active Substance: FLUTICASONE PROPIONATE\SALMETEROL XINAFOATE
  187. ADVAIR HFA [Suspect]
     Active Substance: FLUTICASONE PROPIONATE\SALMETEROL XINAFOATE
  188. ADVAIR HFA [Suspect]
     Active Substance: FLUTICASONE PROPIONATE\SALMETEROL XINAFOATE
  189. SENNA LEAF [Suspect]
     Active Substance: SENNA LEAF
     Indication: Product used for unknown indication
  190. SENNA LEAF [Suspect]
     Active Substance: SENNA LEAF
     Route: 048
  191. SENNA LEAF [Suspect]
     Active Substance: SENNA LEAF
  192. TYLENOL [Suspect]
     Active Substance: ACETAMINOPHEN
     Indication: Product used for unknown indication
  193. GABAPENTIN [Suspect]
     Active Substance: GABAPENTIN
     Indication: Product used for unknown indication
  194. PROGESTERONE [Suspect]
     Active Substance: PROGESTERONE
     Indication: Product used for unknown indication
  195. PROGESTERONE [Suspect]
     Active Substance: PROGESTERONE
  196. PROGESTERONE [Suspect]
     Active Substance: PROGESTERONE
  197. PROGESTERONE [Suspect]
     Active Substance: PROGESTERONE
  198. PROGESTERONE [Suspect]
     Active Substance: PROGESTERONE
  199. PROGESTERONE [Suspect]
     Active Substance: PROGESTERONE
  200. PROGESTERONE [Suspect]
     Active Substance: PROGESTERONE
  201. PROGESTERONE [Suspect]
     Active Substance: PROGESTERONE
  202. PROGESTERONE [Suspect]
     Active Substance: PROGESTERONE
  203. VENTOLIN [Suspect]
     Active Substance: ALBUTEROL SULFATE
     Indication: Product used for unknown indication
  204. VENTOLIN [Suspect]
     Active Substance: ALBUTEROL SULFATE
  205. PANTOPRAZOLE SODIUM ANHYDROUS [Suspect]
     Active Substance: PANTOPRAZOLE SODIUM ANHYDROUS
     Indication: Product used for unknown indication
  206. DEMEROL [Suspect]
     Active Substance: MEPERIDINE HYDROCHLORIDE
     Indication: Product used for unknown indication
  207. SODIUM PICOSULFATE [Suspect]
     Active Substance: SODIUM PICOSULFATE
     Indication: Product used for unknown indication
  208. ABACAVIR SULFATE\LAMIVUDINE [Suspect]
     Active Substance: ABACAVIR SULFATE\LAMIVUDINE
     Indication: Product used for unknown indication
  209. ABACAVIR SULFATE\LAMIVUDINE [Suspect]
     Active Substance: ABACAVIR SULFATE\LAMIVUDINE
  210. HYDROMORPHONE [Suspect]
     Active Substance: HYDROMORPHONE
     Indication: Product used for unknown indication
  211. HYDROMORPHONE [Suspect]
     Active Substance: HYDROMORPHONE
  212. MORPHINE [Suspect]
     Active Substance: MORPHINE
     Indication: Product used for unknown indication
  213. MORPHINE [Suspect]
     Active Substance: MORPHINE
  214. BUPROPION [Suspect]
     Active Substance: BUPROPION
     Indication: Product used for unknown indication
  215. BUPROPION [Suspect]
     Active Substance: BUPROPION
  216. BUPROPION [Suspect]
     Active Substance: BUPROPION
  217. RITUXIMAB [Suspect]
     Active Substance: RITUXIMAB
     Indication: Product used for unknown indication
     Dosage: DOSE FORM: SOLUTION FOR INFUSION AND ROA: INTRAVENOUS (NOT OTHERWISE SPECIFIED)
  218. RITUXIMAB [Suspect]
     Active Substance: RITUXIMAB
     Indication: Rheumatoid arthritis
  219. RITUXIMAB [Suspect]
     Active Substance: RITUXIMAB
  220. RITUXIMAB [Suspect]
     Active Substance: RITUXIMAB
  221. RITUXIMAB [Suspect]
     Active Substance: RITUXIMAB
  222. RITUXIMAB [Suspect]
     Active Substance: RITUXIMAB
     Dosage: DOSE FORM: SOLUTION FOR INFUSION AND ROA: INTRAVENOUS (NOT OTHERWISE SPECIFIED)
  223. RITUXIMAB [Suspect]
     Active Substance: RITUXIMAB
  224. RITUXIMAB [Suspect]
     Active Substance: RITUXIMAB
     Dosage: ROA: INTRAVENOUS (NOT OTHERWISE SPECIFIED)
  225. RITUXIMAB [Suspect]
     Active Substance: RITUXIMAB
     Dosage: DOSE FORM: SOLUTION FOR INFUSION AND ROA: INTRAVENOUS (NOT OTHERWISE SPECIFIED)
  226. RITUXIMAB [Suspect]
     Active Substance: RITUXIMAB
  227. RITUXIMAB [Suspect]
     Active Substance: RITUXIMAB
     Dosage: DOSE FORM: SOLUTION FOR INFUSION AND ROA: INTRAVENOUS DRIP
  228. RITUXIMAB [Suspect]
     Active Substance: RITUXIMAB
     Dosage: DOSE FORM: SOLUTION FOR INFUSION AND ROA: INTRAVENOUS (NOT OTHERWISE SPECIFIED)
  229. RITUXIMAB [Suspect]
     Active Substance: RITUXIMAB
     Dosage: DOSE FORM: SOLUTION FOR INFUSION AND ROA: INTRAVENOUS (NOT OTHERWISE SPECIFIED)
  230. RITUXIMAB [Suspect]
     Active Substance: RITUXIMAB
     Dosage: DOSE FORM: SOLUTION FOR INFUSION AND ROA: INTRAVENOUS DRIP
  231. RITUXIMAB [Suspect]
     Active Substance: RITUXIMAB
  232. RITUXIMAB [Suspect]
     Active Substance: RITUXIMAB
  233. RITUXIMAB [Suspect]
     Active Substance: RITUXIMAB
  234. RITUXIMAB [Suspect]
     Active Substance: RITUXIMAB
  235. RITUXIMAB [Suspect]
     Active Substance: RITUXIMAB
  236. HUMIRA [Suspect]
     Active Substance: ADALIMUMAB
     Indication: Product used for unknown indication
     Route: 058
  237. HUMIRA [Suspect]
     Active Substance: ADALIMUMAB
  238. MONTELUKAST SODIUM [Suspect]
     Active Substance: MONTELUKAST SODIUM
     Indication: Product used for unknown indication
     Route: 058
  239. MONTELUKAST SODIUM [Suspect]
     Active Substance: MONTELUKAST SODIUM
  240. QUETIAPINE FUMARATE [Suspect]
     Active Substance: QUETIAPINE FUMARATE
     Indication: Product used for unknown indication
  241. METHYLPREDNISOLONE ACETATE [Suspect]
     Active Substance: METHYLPREDNISOLONE ACETATE
     Indication: Product used for unknown indication
     Dosage: DOSE FORM: SOLUTION FOR INJECTION
  242. METHYLPREDNISOLONE ACETATE [Suspect]
     Active Substance: METHYLPREDNISOLONE ACETATE
  243. METHYLPREDNISOLONE ACETATE [Suspect]
     Active Substance: METHYLPREDNISOLONE ACETATE
  244. METHYLPREDNISOLONE ACETATE [Suspect]
     Active Substance: METHYLPREDNISOLONE ACETATE
  245. METHYLPREDNISOLONE ACETATE [Suspect]
     Active Substance: METHYLPREDNISOLONE ACETATE
  246. METHYLPREDNISOLONE ACETATE [Suspect]
     Active Substance: METHYLPREDNISOLONE ACETATE
  247. METHYLPREDNISOLONE ACETATE [Suspect]
     Active Substance: METHYLPREDNISOLONE ACETATE
  248. METHYLPREDNISOLONE ACETATE [Suspect]
     Active Substance: METHYLPREDNISOLONE ACETATE
     Dosage: DOSE FORM: SOLUTION FOR INJECTION
  249. METHYLPREDNISOLONE ACETATE [Suspect]
     Active Substance: METHYLPREDNISOLONE ACETATE
     Dosage: DOSE FORM: SOLUTION FOR INJECTION
  250. METHYLPREDNISOLONE ACETATE [Suspect]
     Active Substance: METHYLPREDNISOLONE ACETATE
     Dosage: DOSE FORM: SOLUTION FOR INJECTION
  251. METHYLPREDNISOLONE ACETATE [Suspect]
     Active Substance: METHYLPREDNISOLONE ACETATE
     Dosage: DOSE FORM: SOLUTION FOR INJECTION
  252. METHYLPREDNISOLONE ACETATE [Suspect]
     Active Substance: METHYLPREDNISOLONE ACETATE
     Dosage: DOSE FORM: SOLUTION FOR INJECTION
  253. ALBUTEROL SULFATE [Suspect]
     Active Substance: ALBUTEROL SULFATE
     Indication: Product used for unknown indication
  254. ALBUTEROL SULFATE [Suspect]
     Active Substance: ALBUTEROL SULFATE
  255. ALBUTEROL SULFATE [Suspect]
     Active Substance: ALBUTEROL SULFATE
  256. ALBUTEROL SULFATE [Suspect]
     Active Substance: ALBUTEROL SULFATE
  257. ALBUTEROL SULFATE [Suspect]
     Active Substance: ALBUTEROL SULFATE
  258. ALBUTEROL SULFATE [Suspect]
     Active Substance: ALBUTEROL SULFATE
  259. RANITIDINE HYDROCHLORIDE [Suspect]
     Active Substance: RANITIDINE HYDROCHLORIDE
     Indication: Product used for unknown indication
  260. RANITIDINE HYDROCHLORIDE [Suspect]
     Active Substance: RANITIDINE HYDROCHLORIDE
  261. RANITIDINE HYDROCHLORIDE [Suspect]
     Active Substance: RANITIDINE HYDROCHLORIDE
     Dosage: 20 MG, QD, DOSE FORM: CAPSULE
  262. RANITIDINE HYDROCHLORIDE [Suspect]
     Active Substance: RANITIDINE HYDROCHLORIDE
     Dosage: 20 MG, QD, DOSE FORM: CAPSULE
  263. RANITIDINE HYDROCHLORIDE [Suspect]
     Active Substance: RANITIDINE HYDROCHLORIDE
     Dosage: 20 MG, QD, DOSE FORM: CAPSULE
  264. RANITIDINE HYDROCHLORIDE [Suspect]
     Active Substance: RANITIDINE HYDROCHLORIDE
     Dosage: 20 MG, QD, DOSE FORM: CAPSULE
  265. RANITIDINE HYDROCHLORIDE [Suspect]
     Active Substance: RANITIDINE HYDROCHLORIDE
  266. RANITIDINE HYDROCHLORIDE [Suspect]
     Active Substance: RANITIDINE HYDROCHLORIDE
     Dosage: 20 MG, QD, DOSE FORM: CAPSULE
  267. RANITIDINE HYDROCHLORIDE [Suspect]
     Active Substance: RANITIDINE HYDROCHLORIDE
  268. CETIRIZINE HYDROCHLORIDE [Suspect]
     Active Substance: CETIRIZINE HYDROCHLORIDE
     Indication: Product used for unknown indication
     Dosage: 20 MG, QD
  269. CETIRIZINE HYDROCHLORIDE [Suspect]
     Active Substance: CETIRIZINE HYDROCHLORIDE
     Dosage: 20 MG, QD
  270. CETIRIZINE HYDROCHLORIDE [Suspect]
     Active Substance: CETIRIZINE HYDROCHLORIDE
     Dosage: 20 MG, QD
  271. VENLAFAXINE HYDROCHLORIDE [Suspect]
     Active Substance: VENLAFAXINE HYDROCHLORIDE
     Indication: Product used for unknown indication
  272. MOXIFLOXACIN HYDROCHLORIDE [Suspect]
     Active Substance: MOXIFLOXACIN HYDROCHLORIDE
     Indication: Product used for unknown indication
  273. MOXIFLOXACIN HYDROCHLORIDE [Suspect]
     Active Substance: MOXIFLOXACIN HYDROCHLORIDE
     Route: 058
  274. VITAMIN C [Suspect]
     Active Substance: ASCORBIC ACID
     Indication: Product used for unknown indication
  275. VITAMIN C [Suspect]
     Active Substance: ASCORBIC ACID
  276. VITAMIN C [Suspect]
     Active Substance: ASCORBIC ACID
  277. VITAMIN C [Suspect]
     Active Substance: ASCORBIC ACID
  278. VITAMIN C [Suspect]
     Active Substance: ASCORBIC ACID
  279. CODEINE [Suspect]
     Active Substance: CODEINE
     Indication: Product used for unknown indication
  280. DIPHENHYDRAMINE [Suspect]
     Active Substance: DIPHENHYDRAMINE
     Indication: Product used for unknown indication
     Dosage: 75 MG, QD  (1 EVERY 1 DAYS), DOSE FORM: CAPSULE
  281. DIPHENHYDRAMINE [Suspect]
     Active Substance: DIPHENHYDRAMINE
     Dosage: 75 MG, QD (1 EVERY 1 DAYS), DOSE FORM: CAPSULE
  282. DIPHENHYDRAMINE [Suspect]
     Active Substance: DIPHENHYDRAMINE
     Dosage: 75 MG, QD (1 EVERY 1 DAYS), DOSE FORM: CAPSULE
  283. DIPHENHYDRAMINE [Suspect]
     Active Substance: DIPHENHYDRAMINE
  284. DIPHENHYDRAMINE [Suspect]
     Active Substance: DIPHENHYDRAMINE
     Dosage: QD (1 EVERY 1 DAYS), DOSE FORM: CAPSULE
  285. DIPHENHYDRAMINE [Suspect]
     Active Substance: DIPHENHYDRAMINE
     Dosage: DOSE FORM: CAPSULE
  286. CLONIDINE [Suspect]
     Active Substance: CLONIDINE
     Indication: Eczema
  287. CLONIDINE [Suspect]
     Active Substance: CLONIDINE
     Indication: Product used for unknown indication
  288. CLONIDINE [Suspect]
     Active Substance: CLONIDINE
  289. TOCILIZUMAB [Suspect]
     Active Substance: TOCILIZUMAB
     Indication: Rheumatoid arthritis
  290. TOCILIZUMAB [Suspect]
     Active Substance: TOCILIZUMAB
     Dosage: 500 MG, BID (Q12H)
     Route: 058
  291. TOCILIZUMAB [Suspect]
     Active Substance: TOCILIZUMAB
     Route: 058
  292. TOCILIZUMAB [Suspect]
     Active Substance: TOCILIZUMAB
  293. TOCILIZUMAB [Suspect]
     Active Substance: TOCILIZUMAB
     Route: 058
  294. CITALOPRAM HYDROBROMIDE [Suspect]
     Active Substance: CITALOPRAM HYDROBROMIDE
     Indication: Product used for unknown indication
  295. CITALOPRAM HYDROBROMIDE [Suspect]
     Active Substance: CITALOPRAM HYDROBROMIDE
  296. CITALOPRAM HYDROBROMIDE [Suspect]
     Active Substance: CITALOPRAM HYDROBROMIDE
  297. ONDANSETRON [Suspect]
     Active Substance: ONDANSETRON
     Indication: Product used for unknown indication
  298. HERBALS\PLANTAGO OVATA LEAF [Suspect]
     Active Substance: HERBALS\PLANTAGO OVATA LEAF
     Indication: Product used for unknown indication
  299. HERBALS\PLANTAGO OVATA LEAF [Suspect]
     Active Substance: HERBALS\PLANTAGO OVATA LEAF
  300. TEMAZEPAM [Suspect]
     Active Substance: TEMAZEPAM
     Indication: Product used for unknown indication
  301. TEMAZEPAM [Suspect]
     Active Substance: TEMAZEPAM
  302. TEMAZEPAM [Suspect]
     Active Substance: TEMAZEPAM
     Dosage: 2 EVERY 1 DAYS, DOSE FORM: CAPSULE
  303. TEMAZEPAM [Suspect]
     Active Substance: TEMAZEPAM
     Dosage: DOSE FORM: CAPSULE
  304. PROGESTERONE [Suspect]
     Active Substance: PROGESTERONE
     Indication: Product used for unknown indication
  305. PROGESTERONE [Suspect]
     Active Substance: PROGESTERONE
  306. PROGESTERONE [Suspect]
     Active Substance: PROGESTERONE
  307. PROGESTERONE [Suspect]
     Active Substance: PROGESTERONE
  308. PROGESTERONE [Suspect]
     Active Substance: PROGESTERONE
  309. PROGESTERONE [Suspect]
     Active Substance: PROGESTERONE
  310. PROGESTERONE [Suspect]
     Active Substance: PROGESTERONE
  311. CETIRIZINE HYDROCHLORIDE [Suspect]
     Active Substance: CETIRIZINE HYDROCHLORIDE
     Indication: Product used for unknown indication
     Dosage: 20 MG, QD (1 EVERY 1 DAYS)
  312. CETIRIZINE HYDROCHLORIDE [Suspect]
     Active Substance: CETIRIZINE HYDROCHLORIDE
     Dosage: 20 MG, QD (1 EVERY 1 DAYS)
  313. CETIRIZINE HYDROCHLORIDE [Suspect]
     Active Substance: CETIRIZINE HYDROCHLORIDE
     Dosage: 20 MG, QD (1 EVERY 1 DAYS)
  314. CETIRIZINE HYDROCHLORIDE [Suspect]
     Active Substance: CETIRIZINE HYDROCHLORIDE
     Dosage: 20 MG, QD (1 EVERY 1 DAYS)
  315. CETIRIZINE HYDROCHLORIDE [Suspect]
     Active Substance: CETIRIZINE HYDROCHLORIDE
     Dosage: 20 MG, QD (1 EVERY 1 DAYS)
  316. CETIRIZINE HYDROCHLORIDE [Suspect]
     Active Substance: CETIRIZINE HYDROCHLORIDE
  317. CETIRIZINE HYDROCHLORIDE [Suspect]
     Active Substance: CETIRIZINE HYDROCHLORIDE
  318. ACTEMRA [Suspect]
     Active Substance: TOCILIZUMAB
     Indication: Rheumatoid arthritis
     Dosage: DOSE FORM: SOLUTION FOR INJECTION
  319. ACTEMRA [Suspect]
     Active Substance: TOCILIZUMAB
     Dosage: DOSE FORM: SOLUTION FOR INJECTION
  320. ACTEMRA [Suspect]
     Active Substance: TOCILIZUMAB
  321. ACTEMRA [Suspect]
     Active Substance: TOCILIZUMAB
     Dosage: DOSE FORM: SOLUTION FOR INJECTION AND ROA: SUBCUTANEOUS
  322. ACTEMRA [Suspect]
     Active Substance: TOCILIZUMAB
  323. ACTEMRA [Suspect]
     Active Substance: TOCILIZUMAB
  324. ACTEMRA [Suspect]
     Active Substance: TOCILIZUMAB
     Dosage: DOSE FORM: SOLUTION FOR INJECTION AND ROA: SUBCUTANEOUS
  325. ACTEMRA [Suspect]
     Active Substance: TOCILIZUMAB
     Dosage: 100 MG, QD, DOSE FORM: SOLUTION FOR INJECTION
  326. ACTEMRA [Suspect]
     Active Substance: TOCILIZUMAB
     Dosage: 500 MG, BID, DOSE FORM: SOLUTION FOR INJECTION AND ROA: SUBCUTANEOUS
  327. ACTEMRA [Suspect]
     Active Substance: TOCILIZUMAB
     Dosage: 500 MG, BID, DOSE FORM: SOLUTION FOR INJECTION AND ROA: SUBCUTANEOUS
  328. ACTEMRA [Suspect]
     Active Substance: TOCILIZUMAB
     Dosage: DOSE FORM: SOLUTION FOR INJECTION AND ROA: SUBCUTANEOUS
  329. ACTEMRA [Suspect]
     Active Substance: TOCILIZUMAB
     Dosage: DOSE FORM: SOLUTION FOR INJECTION AND ROA: SUBCUTANEOUS
  330. ACTEMRA [Suspect]
     Active Substance: TOCILIZUMAB
  331. ACTEMRA [Suspect]
     Active Substance: TOCILIZUMAB
     Dosage: DOSE FORM: SOLUTION FOR INJECTION
  332. ACTEMRA [Suspect]
     Active Substance: TOCILIZUMAB
     Dosage: DOSE FORM: SOLUTION FOR INJECTION AND ROA: SUBCUTANEOUS
  333. ACTEMRA [Suspect]
     Active Substance: TOCILIZUMAB
     Dosage: DOSE FORM: SOLUTION FOR INJECTION
  334. ACTEMRA [Suspect]
     Active Substance: TOCILIZUMAB
  335. MORPHINE SULFATE [Suspect]
     Active Substance: MORPHINE SULFATE
     Indication: Product used for unknown indication
  336. MORPHINE SULFATE [Suspect]
     Active Substance: MORPHINE SULFATE
  337. MORPHINE SULFATE [Suspect]
     Active Substance: MORPHINE SULFATE
  338. DIPHENHYDRAMINE [Suspect]
     Active Substance: DIPHENHYDRAMINE
     Indication: Product used for unknown indication
  339. DIPHENHYDRAMINE [Suspect]
     Active Substance: DIPHENHYDRAMINE
  340. DIPHENHYDRAMINE [Suspect]
     Active Substance: DIPHENHYDRAMINE
  341. DIPHENHYDRAMINE [Suspect]
     Active Substance: DIPHENHYDRAMINE
  342. DIPHENHYDRAMINE [Suspect]
     Active Substance: DIPHENHYDRAMINE
  343. DIPHENHYDRAMINE [Suspect]
     Active Substance: DIPHENHYDRAMINE
  344. PROGESTERONE [Suspect]
     Active Substance: PROGESTERONE
     Indication: Product used for unknown indication
  345. PROGESTERONE [Suspect]
     Active Substance: PROGESTERONE
  346. PROGESTERONE [Suspect]
     Active Substance: PROGESTERONE
  347. PROGESTERONE [Suspect]
     Active Substance: PROGESTERONE
  348. PROGESTERONE [Suspect]
     Active Substance: PROGESTERONE
  349. PROGESTERONE [Suspect]
     Active Substance: PROGESTERONE
  350. PROGESTERONE [Suspect]
     Active Substance: PROGESTERONE
  351. PROGESTERONE [Suspect]
     Active Substance: PROGESTERONE
  352. PROGESTERONE [Suspect]
     Active Substance: PROGESTERONE
  353. PROGESTERONE [Suspect]
     Active Substance: PROGESTERONE
  354. PROGESTERONE [Suspect]
     Active Substance: PROGESTERONE
  355. PROGESTERONE [Suspect]
     Active Substance: PROGESTERONE
  356. PROGESTERONE [Suspect]
     Active Substance: PROGESTERONE
     Indication: Product used for unknown indication
  357. ACETAMINOPHEN\OXYCODONE HYDROCHLORIDE [Suspect]
     Active Substance: ACETAMINOPHEN\OXYCODONE HYDROCHLORIDE
     Indication: Product used for unknown indication
  358. ACTEMRA [Suspect]
     Active Substance: TOCILIZUMAB
     Indication: Rheumatoid arthritis
  359. METHYLPREDNISOLONE ACETATE [Suspect]
     Active Substance: METHYLPREDNISOLONE ACETATE
     Indication: Product used for unknown indication
  360. METHYLPREDNISOLONE ACETATE [Suspect]
     Active Substance: METHYLPREDNISOLONE ACETATE
  361. METHYLPREDNISOLONE ACETATE [Suspect]
     Active Substance: METHYLPREDNISOLONE ACETATE
  362. METHYLPREDNISOLONE ACETATE [Suspect]
     Active Substance: METHYLPREDNISOLONE ACETATE
  363. METHYLPREDNISOLONE ACETATE [Suspect]
     Active Substance: METHYLPREDNISOLONE ACETATE
  364. METHYLPREDNISOLONE ACETATE [Suspect]
     Active Substance: METHYLPREDNISOLONE ACETATE
  365. METHYLPREDNISOLONE ACETATE [Suspect]
     Active Substance: METHYLPREDNISOLONE ACETATE
  366. METHYLPREDNISOLONE ACETATE [Suspect]
     Active Substance: METHYLPREDNISOLONE ACETATE
  367. METHYLPREDNISOLONE ACETATE [Suspect]
     Active Substance: METHYLPREDNISOLONE ACETATE
  368. METHYLPREDNISOLONE ACETATE [Suspect]
     Active Substance: METHYLPREDNISOLONE ACETATE
  369. METHYLPREDNISOLONE ACETATE [Suspect]
     Active Substance: METHYLPREDNISOLONE ACETATE
  370. METHYLPREDNISOLONE ACETATE [Suspect]
     Active Substance: METHYLPREDNISOLONE ACETATE
  371. CETIRIZINE HYDROCHLORIDE [Suspect]
     Active Substance: CETIRIZINE HYDROCHLORIDE
     Indication: Product used for unknown indication
  372. PSYLLIUM HUSK [Suspect]
     Active Substance: PSYLLIUM HUSK
     Indication: Product used for unknown indication
  373. VITAMIN C [Suspect]
     Active Substance: ASCORBIC ACID
     Indication: Product used for unknown indication
  374. VITAMIN C [Suspect]
     Active Substance: ASCORBIC ACID
     Indication: Product used for unknown indication
  375. VITAMIN C [Suspect]
     Active Substance: ASCORBIC ACID
  376. VITAMIN C [Suspect]
     Active Substance: ASCORBIC ACID
  377. VITAMIN C [Suspect]
     Active Substance: ASCORBIC ACID
  378. VITAMIN C [Suspect]
     Active Substance: ASCORBIC ACID
  379. PANTOPRAZOLE [Suspect]
     Active Substance: PANTOPRAZOLE
     Indication: Product used for unknown indication
  380. PANTOPRAZOLE [Suspect]
     Active Substance: PANTOPRAZOLE
  381. PANTOPRAZOLE [Suspect]
     Active Substance: PANTOPRAZOLE
  382. PANTOPRAZOLE [Suspect]
     Active Substance: PANTOPRAZOLE
  383. PANTOPRAZOLE [Suspect]
     Active Substance: PANTOPRAZOLE
  384. PANTOPRAZOLE [Suspect]
     Active Substance: PANTOPRAZOLE
  385. PANTOPRAZOLE [Suspect]
     Active Substance: PANTOPRAZOLE
     Indication: Product used for unknown indication
  386. PANTOPRAZOLE [Suspect]
     Active Substance: PANTOPRAZOLE
  387. PANTOPRAZOLE [Suspect]
     Active Substance: PANTOPRAZOLE
  388. PANTOPRAZOLE [Suspect]
     Active Substance: PANTOPRAZOLE
  389. PANTOPRAZOLE [Suspect]
     Active Substance: PANTOPRAZOLE
  390. PANTOPRAZOLE [Suspect]
     Active Substance: PANTOPRAZOLE
  391. MORPHINE [Suspect]
     Active Substance: MORPHINE
     Indication: Product used for unknown indication
  392. NORTRIPTYLINE HYDROCHLORIDE [Suspect]
     Active Substance: NORTRIPTYLINE HYDROCHLORIDE
     Indication: Product used for unknown indication
  393. NORTRIPTYLINE HYDROCHLORIDE [Suspect]
     Active Substance: NORTRIPTYLINE HYDROCHLORIDE
  394. WELLBUTRIN [Suspect]
     Active Substance: BUPROPION HYDROCHLORIDE
     Indication: Product used for unknown indication
  395. WELLBUTRIN [Suspect]
     Active Substance: BUPROPION HYDROCHLORIDE
  396. WELLBUTRIN [Suspect]
     Active Substance: BUPROPION HYDROCHLORIDE
  397. CHLORMEZANONE [Suspect]
     Active Substance: CHLORMEZANONE
     Indication: Rheumatoid arthritis
  398. CHLORMEZANONE [Suspect]
     Active Substance: CHLORMEZANONE
     Indication: Product used for unknown indication
  399. HYDROMORPHONE HYDROCHLORIDE [Suspect]
     Active Substance: HYDROMORPHONE HYDROCHLORIDE
     Indication: Product used for unknown indication
  400. HYDROMORPHONE HYDROCHLORIDE [Suspect]
     Active Substance: HYDROMORPHONE HYDROCHLORIDE
  401. HYDROMORPHONE HYDROCHLORIDE [Suspect]
     Active Substance: HYDROMORPHONE HYDROCHLORIDE
  402. CETIRIZINE HYDROCHLORIDE [Suspect]
     Active Substance: CETIRIZINE HYDROCHLORIDE
     Indication: Product used for unknown indication
  403. CETIRIZINE HYDROCHLORIDE [Suspect]
     Active Substance: CETIRIZINE HYDROCHLORIDE
  404. CETIRIZINE HYDROCHLORIDE [Suspect]
     Active Substance: CETIRIZINE HYDROCHLORIDE
  405. SENNA [Suspect]
     Active Substance: SENNOSIDES
     Indication: Product used for unknown indication
     Route: 048
  406. SENNA [Suspect]
     Active Substance: SENNOSIDES

REACTIONS (23)
  - Foetal death [Unknown]
  - Treatment failure [Unknown]
  - Hyperhidrosis [Not Recovered/Not Resolved]
  - Pain [Not Recovered/Not Resolved]
  - Fluid retention [Unknown]
  - Hypersensitivity [Not Recovered/Not Resolved]
  - Drug intolerance [Unknown]
  - Intentional product misuse [Not Recovered/Not Resolved]
  - Contraindicated product administered [Unknown]
  - Hypertension [Not Recovered/Not Resolved]
  - Temperature regulation disorder [Unknown]
  - Off label use [Not Recovered/Not Resolved]
  - Psoriasis [Unknown]
  - Joint swelling [Not Recovered/Not Resolved]
  - Infusion related reaction [Not Recovered/Not Resolved]
  - Food allergy [Not Recovered/Not Resolved]
  - Prescribed overdose [Not Recovered/Not Resolved]
  - Immunodeficiency [Not Recovered/Not Resolved]
  - Overdose [Not Recovered/Not Resolved]
  - Headache [Not Recovered/Not Resolved]
  - Exposure during pregnancy [Not Recovered/Not Resolved]
  - Hepatic enzyme increased [Not Recovered/Not Resolved]
  - Product use issue [Not Recovered/Not Resolved]
